FAERS Safety Report 8275694-3 (Version None)
Quarter: 2012Q1

REPORT INFORMATION
  Report Type: 
  Country: None (occurrence: None)
  Receive Date: 20120309
  Receipt Date: 20111115
  Transmission Date: 20120608
  Serious: No
  Sender: FDA-Public Use
  Company Number: TH-2011-00502

PATIENT
  Age: 36 Year
  Sex: Male

DRUGS (2)
  1. ATRIPLA (EMTRICITABINE, EFAVIRENZ, TENOFOVIR DISOPROXIL FUMARATE) [Concomitant]
  2. EGRIFTA [Suspect]
     Indication: LIPODYSTROPHY ACQUIRED
     Dosage: 1 IN 1 D
     Dates: start: 20111028

REACTIONS (1)
  - HAEMOGLOBIN ABNORMAL [None]
